FAERS Safety Report 9058838 (Version 1)
Quarter: 2013Q1

REPORT INFORMATION
  Report Type: Report from Study
  Country: JP (occurrence: JP)
  Receive Date: 20130204
  Receipt Date: 20130204
  Transmission Date: 20140127
  Serious: Yes (Hospitalization)
  Sender: FDA-Public Use
  Company Number: JP-AMGEN-JPNCT2013007476

PATIENT
  Age: 61 Year
  Sex: Female
  Weight: 53 kg

DRUGS (12)
  1. DARBEPOETIN ALFA [Suspect]
     Indication: NEPHROGENIC ANAEMIA
     Dosage: 20 MUG, UNK
     Route: 065
     Dates: start: 20120903
  2. ARTIST [Concomitant]
     Indication: CARDIAC FAILURE CHRONIC
     Dosage: UNK
     Route: 048
  3. LASIX [Concomitant]
     Indication: HYPERTENSION
     Dosage: UNK
     Route: 048
  4. PARIET [Concomitant]
     Indication: GASTRITIS PROPHYLAXIS
     Dosage: UNK
     Route: 048
  5. FEBURIC [Concomitant]
     Indication: HYPERURICAEMIA
     Dosage: UNK
     Route: 048
  6. FLUITRAN [Concomitant]
     Indication: CARDIAC FAILURE
     Dosage: UNK
     Route: 048
  7. TANATRIL [Concomitant]
     Indication: HYPERTENSION
     Dosage: UNK
     Route: 048
  8. WARFARIN [Concomitant]
     Indication: SURGERY
     Dosage: UNK
     Route: 048
  9. LENDORMIN DAINIPPO [Concomitant]
     Indication: INSOMNIA
     Dosage: UNK
     Route: 048
  10. CODEINE PHOSPHATE [Concomitant]
     Indication: COUGH
     Dosage: 1 G, UNK
     Route: 048
  11. FERROMIA [Concomitant]
     Indication: MINERAL SUPPLEMENTATION
     Dosage: UNK
     Route: 048
  12. MYSER [Concomitant]
     Indication: PRURITUS
     Dosage: UNK
     Route: 062

REACTIONS (1)
  - Arrhythmia [Not Recovered/Not Resolved]
